FAERS Safety Report 6999570-9 (Version None)
Quarter: 2010Q3

REPORT INFORMATION
  Report Type: 
  Country: None (occurrence: None)
  Receive Date: 20100920
  Receipt Date: 20071219
  Transmission Date: 20110219
  Serious: Yes (Other)
  Sender: FDA-Public Use
  Company Number: US-ASTRAZENECA-2006UW08289

PATIENT
  Sex: Male

DRUGS (8)
  1. SEROQUEL [Suspect]
     Indication: DEPRESSION
     Route: 048
     Dates: start: 19991001
  2. SEROQUEL [Suspect]
     Route: 048
     Dates: start: 20010101, end: 20060101
  3. PREVACID [Concomitant]
     Route: 048
     Dates: start: 20050601
  4. AMBIEN [Concomitant]
     Dates: start: 20051027
  5. ZOLOFT [Concomitant]
     Dates: start: 20060119
  6. LORAZEPAM [Concomitant]
     Dates: start: 20040106
  7. HALOPERIDOL [Concomitant]
     Dosage: STRENGHT-500MCG TO 1MG
     Dates: start: 20021227
  8. TEMAZEPAM [Concomitant]
     Dates: start: 20021227

REACTIONS (2)
  - DIABETES MELLITUS [None]
  - KETOACIDOSIS [None]
